FAERS Safety Report 23276313 (Version 1)
Quarter: 2023Q4

REPORT INFORMATION
  Report Type: Other
  Country: PK (occurrence: None)
  Receive Date: 20231208
  Receipt Date: 20231208
  Transmission Date: 20240110
  Serious: Yes (Other)
  Sender: FDA-Public Use
  Company Number: PK-ROCHE-3470014

PATIENT
  Age: 54 Year
  Sex: Male

DRUGS (1)
  1. RITUXIMAB [Suspect]
     Active Substance: RITUXIMAB
     Indication: Non-Hodgkin^s lymphoma
     Dosage: 3 WEEKS
     Route: 041
     Dates: start: 20231116

REACTIONS (1)
  - Non-Hodgkin^s lymphoma recurrent [Unknown]

NARRATIVE: CASE EVENT DATE: 20231116
